FAERS Safety Report 6433280-1 (Version None)
Quarter: 2009Q4

REPORT INFORMATION
  Report Type: 
  Country: None (occurrence: None)
  Receive Date: 20091109
  Receipt Date: 20091030
  Transmission Date: 20100525
  Serious: Yes (Other)
  Sender: FDA-Public Use
  Company Number: US-AMGEN-QUU361061

PATIENT
  Sex: Male
  Weight: 107.8 kg

DRUGS (4)
  1. ENBREL [Suspect]
     Indication: RHEUMATOID ARTHRITIS
     Route: 058
     Dates: start: 20080601
  2. METHOTREXATE [Concomitant]
     Dates: start: 20040101
  3. ASACOL [Concomitant]
  4. PAXIL [Concomitant]

REACTIONS (6)
  - COLITIS ULCERATIVE [None]
  - ERYTHEMA [None]
  - IMMUNOSUPPRESSION [None]
  - JOINT STIFFNESS [None]
  - RHEUMATOID ARTHRITIS [None]
  - TRANSAMINASES INCREASED [None]
